FAERS Safety Report 4921158-1 (Version None)
Quarter: 2006Q1

REPORT INFORMATION
  Report Type: 
  Country: None (occurrence: None)
  Receive Date: 20060217
  Receipt Date: 20060201
  Transmission Date: 20060701
  Serious: Yes (Death)
  Sender: FDA-Public Use
  Company Number: 2006JP000219

PATIENT
  Age: 34 Year
  Sex: Male

DRUGS (10)
  1. PROGRAF [Suspect]
     Indication: BONE MARROW TRANSPLANT
     Dosage: 0.03 MG/KG, IV DRIP
     Route: 041
  2. METHOTREXATE [Concomitant]
  3. LEVOFLOXACIN [Concomitant]
  4. FLUCONAZOLE [Concomitant]
  5. SULFAMETHOXAZOLE + TRIMETHOPRIM [Concomitant]
  6. ACYCLOVIR [Concomitant]
  7. GANCICLOVIR (GANCICLOVIR) [Concomitant]
  8. METHYLPREDNISOLONE [Concomitant]
  9. CYCLOPHOSPHAMIDE [Concomitant]
  10. MORPHINE [Concomitant]

REACTIONS (6)
  - AMNESIA [None]
  - COMA [None]
  - CONFUSIONAL STATE [None]
  - CONVULSION [None]
  - ENCEPHALITIS [None]
  - HEMIPLEGIA [None]
